FAERS Safety Report 8277065-2 (Version None)
Quarter: 2012Q2

REPORT INFORMATION
  Report Type: 
  Country: None (occurrence: None)
  Receive Date: 20120412
  Receipt Date: 20120328
  Transmission Date: 20120825
  Serious: Yes (Hospitalization, Other)
  Sender: FDA-Public Use
  Company Number: JP-ROCHE-1025683

PATIENT
  Age: 60 Year
  Sex: Male
  Weight: 61 kg

DRUGS (10)
  1. ALLOPURINOL [Concomitant]
     Route: 048
  2. PREDNISOLONE [Suspect]
     Indication: PROPHYLAXIS AGAINST TRANSPLANT REJECTION
     Route: 048
  3. PRAVASTATIN SODIUM [Concomitant]
     Route: 048
  4. ADRENAL HORMONE PREPARATION (UNK INGREDIENTS) [Concomitant]
     Indication: PROPHYLAXIS AGAINST TRANSPLANT REJECTION
  5. DIART [Concomitant]
     Route: 048
  6. ATELEC [Concomitant]
     Route: 048
  7. OLMESARTAN MEDOXOMIL AND HYDROCHLOROTHIZIDE [Concomitant]
     Route: 048
  8. FAMOTIDINE [Concomitant]
     Route: 048
  9. MYCOPHENOLATE MOFETIL (CELLCEPT) [Suspect]
     Indication: PROPHYLAXIS AGAINST TRANSPLANT REJECTION
     Dosage: DOSAGE IS UNCERTAIN.
     Route: 048
     Dates: end: 20100525
  10. MYCOPHENOLATE MOFETIL (CELLCEPT) [Suspect]
     Dosage: DOSAGE IS UNCERTAIN.
     Route: 048
     Dates: start: 20100823

REACTIONS (3)
  - OSTEOMYELITIS CHRONIC [None]
  - APLASIA PURE RED CELL [None]
  - EMBOLISM [None]
